FAERS Safety Report 4814592-1 (Version None)
Quarter: 2005Q4

REPORT INFORMATION
  Report Type: 
  Country: None (occurrence: None)
  Receive Date: 20051028
  Receipt Date: 20051024
  Transmission Date: 20060501
  Serious: Yes (Hospitalization)
  Sender: FDA-Public Use
  Company Number: 57508

PATIENT
  Age: 47 Year
  Sex: Male

DRUGS (1)
  1. LAMICTAL [Suspect]
     Indication: DRUG DISPENSING ERROR
     Dosage: 200MG SINGLE DOSE
     Route: 048

REACTIONS (3)
  - ADVERSE EVENT [None]
  - MEDICATION ERROR [None]
  - PHARMACEUTICAL PRODUCT COMPLAINT [None]
